FAERS Safety Report 14193971 (Version 7)
Quarter: 2018Q4

REPORT INFORMATION
  Report Type: Report from Study
  Country: DE (occurrence: DE)
  Receive Date: 20171116
  Receipt Date: 20181011
  Transmission Date: 20190204
  Serious: Yes (Hospitalization)
  Sender: FDA-Public Use
  Company Number: DE-ROCHE-2019825

PATIENT
  Age: 66 Year
  Sex: Female

DRUGS (2)
  1. COBIMETINIB. [Suspect]
     Active Substance: COBIMETINIB
     Indication: METASTATIC MALIGNANT MELANOMA
     Dosage: MOST RECENT DOSE OF COBIMETINIB PRIOR TO THE WORSENING OF ACUTE KIDNEY INJURY: 01/NOV/2017
     Route: 048
     Dates: start: 20170622
  2. VEMURAFENIB. [Suspect]
     Active Substance: VEMURAFENIB
     Indication: METASTATIC MALIGNANT MELANOMA
     Dosage: MOST RECENT DOSE OF VEMURAFENIB PRIOR TO THE WORSENING OF ACUTE KIDNEY INJURY: 01/NOV/2017
     Route: 048
     Dates: start: 20170622

REACTIONS (1)
  - Acute kidney injury [Recovered/Resolved]

NARRATIVE: CASE EVENT DATE: 20171030
